FAERS Safety Report 9298526 (Version 2)
Quarter: 2014Q2

REPORT INFORMATION
  Report Type: Spontaneous
  Country: BR (occurrence: BR)
  Receive Date: 20130520
  Receipt Date: 20140508
  Transmission Date: 20141212
  Serious: Yes (Hospitalization)
  Sender: FDA-Public Use
  Company Number: BR-ASTRAZENECA-2013SE32931

PATIENT
  Age: 57 Year
  Sex: Male
  Weight: 86 kg

DRUGS (6)
  1. CRESTOR [Suspect]
     Indication: BLOOD CHOLESTEROL INCREASED
     Route: 048
     Dates: start: 2011
  2. BRILINTA [Suspect]
     Route: 048
     Dates: start: 201302, end: 201402
  3. ASPIRIN PREVENT [Concomitant]
     Route: 048
     Dates: start: 2007, end: 201402
  4. SUSTRATE [Concomitant]
     Dates: start: 2007
  5. CONDROFLEX [Concomitant]
     Indication: CHONDROPATHY
     Dates: start: 2009
  6. PLAVIX [Concomitant]
     Dates: start: 2007, end: 2012

REACTIONS (3)
  - Venous thrombosis [Recovered/Resolved]
  - Prostatomegaly [Recovered/Resolved]
  - Fatigue [Recovered/Resolved]
